FAERS Safety Report 15549782 (Version 3)
Quarter: 2019Q1

REPORT INFORMATION
  Report Type: Report from Study
  Country: CA (occurrence: CA)
  Receive Date: 20181025
  Receipt Date: 20190321
  Transmission Date: 20190417
  Serious: Yes (Hospitalization, Other)
  Sender: FDA-Public Use
  Company Number: PHHY2018CA129746

PATIENT
  Age: 73 Year
  Sex: Female
  Weight: 67.2 kg

DRUGS (35)
  1. FENTANYL. [Concomitant]
     Active Substance: FENTANYL
     Indication: PAIN
     Dosage: 75 OT (MCP), UNK
     Route: 065
     Dates: start: 201703, end: 201706
  2. HYDROMORPHONE [Concomitant]
     Active Substance: HYDROMORPHONE
     Dosage: 12 MG, UNK
     Route: 065
     Dates: start: 20170214, end: 20170221
  3. HYDROMORPHONE [Concomitant]
     Active Substance: HYDROMORPHONE
     Dosage: 18 MG, UNK
     Route: 065
     Dates: start: 20170222, end: 20170328
  4. SYNTHROID [Concomitant]
     Active Substance: LEVOTHYROXINE SODIUM
     Indication: HYPOTHYROIDISM
     Dosage: 125 UG, UNK
     Route: 065
     Dates: start: 1997
  5. TYLENOL [Concomitant]
     Active Substance: ACETAMINOPHEN
     Indication: PAIN
     Dosage: UNK
     Route: 065
     Dates: start: 2017, end: 2017
  6. PREGABALIN. [Concomitant]
     Active Substance: PREGABALIN
     Indication: PAIN
     Dosage: 150 MG, BID
     Route: 065
  7. LYRICA [Concomitant]
     Active Substance: PREGABALIN
     Dosage: 50 MG, UNK
     Route: 065
     Dates: start: 20170214
  8. PANTOLOC [Concomitant]
     Active Substance: PANTOPRAZOLE SODIUM
     Indication: PAIN
     Dosage: UNK
     Route: 065
     Dates: start: 20170301, end: 20170306
  9. AFINITOR [Suspect]
     Active Substance: EVEROLIMUS
     Indication: BREAST CANCER METASTATIC
     Dosage: 25 MG, UNK
     Route: 048
     Dates: start: 20170707, end: 20180419
  10. DALTEPARIN [Concomitant]
     Active Substance: DALTEPARIN
     Indication: EMBOLISM
     Dosage: 5000 U, QD
     Route: 065
     Dates: start: 201801
  11. ACETAMINOPHEN. [Concomitant]
     Active Substance: ACETAMINOPHEN
     Indication: PRODUCT USED FOR UNKNOWN INDICATION
     Route: 065
  12. NAPROSYN [Concomitant]
     Active Substance: NAPROXEN
     Indication: PAIN
     Dosage: 250 MG, UNK
     Route: 065
     Dates: start: 201705, end: 201707
  13. HYDROMORPHONE [Suspect]
     Active Substance: HYDROMORPHONE
     Indication: PAIN
     Dosage: 4 MG, BID
     Route: 048
     Dates: start: 201805
  14. EXEMESTANE. [Suspect]
     Active Substance: EXEMESTANE
     Indication: BREAST CANCER METASTATIC
     Dosage: UNK
     Route: 065
  15. FENTANYL. [Concomitant]
     Active Substance: FENTANYL
     Dosage: (75-100 MCG) QH
     Route: 065
     Dates: start: 201709
  16. CALCIUM [Concomitant]
     Active Substance: CALCIUM
     Indication: PROPHYLAXIS
     Dosage: 650 MG, UNK
     Route: 065
     Dates: start: 20170117, end: 201703
  17. ATIVAN [Concomitant]
     Active Substance: LORAZEPAM
     Indication: ANXIETY
     Dosage: UNK
     Route: 065
     Dates: start: 20170221
  18. RESTORALAX [Concomitant]
     Active Substance: POLYETHYLENE GLYCOL 3350
     Dosage: 17 G, UNK
     Route: 065
     Dates: start: 201705
  19. FENTANYL. [Concomitant]
     Active Substance: FENTANYL
     Dosage: 25 UG, UNK
     Route: 065
     Dates: start: 201706, end: 201706
  20. PERCOCET [Concomitant]
     Active Substance: ACETAMINOPHEN\OXYCODONE HYDROCHLORIDE
     Indication: PAIN
     Dosage: UNK
     Route: 065
     Dates: start: 2017, end: 2017
  21. SENOKOT [Concomitant]
     Active Substance: SENNOSIDES
     Indication: CONSTIPATION
     Dosage: UNK
     Route: 065
     Dates: start: 20170214
  22. HYDROMORPHONE [Concomitant]
     Active Substance: HYDROMORPHONE
     Indication: PAIN
     Dosage: 1 MG, UNK
     Route: 065
     Dates: start: 2017
  23. HYDROMORPHONE [Concomitant]
     Active Substance: HYDROMORPHONE
     Dosage: 2-3 MG, PRN
     Route: 048
     Dates: start: 201805
  24. ZOLEDRONATE [Concomitant]
     Active Substance: ZOLEDRONIC ACID
     Indication: PRODUCT USED FOR UNKNOWN INDICATION
     Route: 065
  25. DEXAMETHASONE. [Concomitant]
     Active Substance: DEXAMETHASONE
     Indication: RADIATION ASSOCIATED PAIN
     Dosage: 8 MG, UNK
     Route: 065
     Dates: start: 20170214
  26. DEXAMETHASONE. [Concomitant]
     Active Substance: DEXAMETHASONE
     Dosage: 4 MG, UNK
     Route: 065
     Dates: start: 20170221, end: 201703
  27. FRAGMIN [Concomitant]
     Active Substance: DALTEPARIN SODIUM
     Indication: DEEP VEIN THROMBOSIS
     Dosage: 10000 UNK, UNK
     Route: 065
     Dates: start: 201703, end: 201801
  28. FRAGMIN [Concomitant]
     Active Substance: DALTEPARIN SODIUM
     Indication: PULMONARY EMBOLISM
  29. LYRICA [Concomitant]
     Active Substance: PREGABALIN
     Indication: PAIN
     Dosage: UNK MG, UNK
     Route: 065
     Dates: start: 201702, end: 201702
  30. LYRICA [Concomitant]
     Active Substance: PREGABALIN
     Dosage: 75 MG, UNK
     Route: 065
     Dates: start: 20170505
  31. RESTORALAX [Concomitant]
     Active Substance: POLYETHYLENE GLYCOL 3350
     Indication: CONSTIPATION
     Dosage: 17 G, UNK
     Route: 065
     Dates: start: 20170214, end: 201704
  32. HYDROMORPHONE [Concomitant]
     Active Substance: HYDROMORPHONE
     Dosage: 18 MG, UNK
     Route: 065
     Dates: start: 20170301, end: 201703
  33. PANTOLOC [Concomitant]
     Active Substance: PANTOPRAZOLE SODIUM
     Indication: PROPHYLAXIS
     Dosage: UNK
     Route: 065
  34. SYNTHROID [Concomitant]
     Active Substance: LEVOTHYROXINE SODIUM
     Dosage: 150 UG, UNK
     Route: 065
     Dates: start: 201704
  35. VENTOLIN [Concomitant]
     Active Substance: ALBUTEROL SULFATE
     Indication: DYSPNOEA
     Dosage: 2 DF, (PUFFS)
     Route: 065
     Dates: start: 201703

REACTIONS (25)
  - Malignant neoplasm progression [Recovered/Resolved]
  - Oedema [Unknown]
  - Infection [Unknown]
  - Fatigue [Unknown]
  - Lethargy [Unknown]
  - Pulmonary embolism [Recovered/Resolved]
  - Urinary tract infection [Recovered/Resolved]
  - Chest discomfort [Unknown]
  - Metastases to bone [Recovered/Resolved]
  - Breast cancer metastatic [Recovered/Resolved]
  - Ascites [Unknown]
  - Chest pain [Unknown]
  - Delirium [Recovered/Resolved]
  - Confusional state [Unknown]
  - Constipation [Recovered/Resolved]
  - Pleural effusion [Recovered/Resolved]
  - Toxicity to various agents [Recovered/Resolved]
  - Pain [Recovered/Resolved]
  - Oedema peripheral [Recovered/Resolved]
  - Renal impairment [Recovered/Resolved]
  - Oedema peripheral [Unknown]
  - Hydronephrosis [Recovered/Resolved]
  - Dyspnoea [Unknown]
  - Compression fracture [Recovered/Resolved]
  - Acute kidney injury [Recovered/Resolved]

NARRATIVE: CASE EVENT DATE: 20180430
